APPROVED DRUG PRODUCT: TELMISARTAN
Active Ingredient: TELMISARTAN
Strength: 20MG
Dosage Form/Route: TABLET;ORAL
Application: A204415 | Product #001 | TE Code: AB
Applicant: AMNEAL PHARMACEUTICALS
Approved: Sep 8, 2015 | RLD: No | RS: No | Type: RX